FAERS Safety Report 6139460-7 (Version None)
Quarter: 2009Q1

REPORT INFORMATION
  Report Type: 
  Country: None (occurrence: None)
  Receive Date: 20090324
  Receipt Date: 20090318
  Transmission Date: 20090719
  Serious: Yes (Hospitalization)
  Sender: FDA-Public Use
  Company Number: GXKR2009US03428

PATIENT
  Age: 75 Year
  Sex: Female

DRUGS (5)
  1. FLUOROURACIL [Suspect]
     Indication: COLON CANCER
  2. LEUCOVORIN CALCIUM [Suspect]
     Indication: COLON CANCER
  3. OXALIPLATIN [Suspect]
     Indication: COLON CANCER
  4. IRINOTECAN HCL [Suspect]
     Indication: COLON CANCER
  5. CETUXIMAB (CETUXIMAB) [Concomitant]
     Indication: COLON CANCER

REACTIONS (4)
  - DYSPNOEA [None]
  - ELECTROCARDIOGRAM ABNORMAL [None]
  - HYPOKINESIA [None]
  - STRESS CARDIOMYOPATHY [None]
